FAERS Safety Report 18797752 (Version 3)
Quarter: 2021Q2

REPORT INFORMATION
  Report Type: Spontaneous
  Country: BR (occurrence: BR)
  Receive Date: 20210128
  Receipt Date: 20210430
  Transmission Date: 20210717
  Serious: Yes (Hospitalization, Disabling, Other)
  Sender: FDA-Public Use
  Company Number: BR-ASTRAZENECA-2021A014063

PATIENT
  Age: 773 Month
  Sex: Female

DRUGS (2)
  1. HERBAL MEDICINE [Concomitant]
     Indication: BREAST DISORDER
  2. IRESSA [Suspect]
     Active Substance: GEFITINIB
     Route: 048
     Dates: start: 20210101, end: 20210110

REACTIONS (28)
  - Pleural effusion [Recovering/Resolving]
  - Stevens-Johnson syndrome [Recovered/Resolved]
  - Pulmonary pain [Not Recovered/Not Resolved]
  - Vomiting [Not Recovered/Not Resolved]
  - Inflammation [Recovered/Resolved]
  - Haemorrhage [Recovered/Resolved]
  - Candida infection [Recovered/Resolved]
  - Cystitis [Recovered/Resolved]
  - Insomnia [Not Recovered/Not Resolved]
  - Vaginal disorder [Recovered/Resolved]
  - Hypoaesthesia [Not Recovered/Not Resolved]
  - Gait inability [Recovered/Resolved]
  - Coagulopathy [Recovered/Resolved]
  - Gastrointestinal motility disorder [Not Recovered/Not Resolved]
  - Epistaxis [Recovered/Resolved]
  - Dry eye [Not Recovered/Not Resolved]
  - Dry skin [Not Recovered/Not Resolved]
  - Speech disorder [Recovered/Resolved]
  - Acne [Recovered/Resolved]
  - Fatigue [Not Recovered/Not Resolved]
  - Cardiac disorder [Not Recovered/Not Resolved]
  - Diarrhoea [Recovered/Resolved]
  - Nausea [Not Recovered/Not Resolved]
  - Contusion [Recovered/Resolved]
  - Bone pain [Not Recovered/Not Resolved]
  - Weight decreased [Not Recovered/Not Resolved]
  - Furuncle [Not Recovered/Not Resolved]
  - Decreased appetite [Not Recovered/Not Resolved]

NARRATIVE: CASE EVENT DATE: 2021
